FAERS Safety Report 10301636 (Version 1)
Quarter: 2014Q3

REPORT INFORMATION
  Report Type: Spontaneous
  Country: TR (occurrence: TR)
  Receive Date: 20140714
  Receipt Date: 20140714
  Transmission Date: 20150326
  Serious: Yes (Hospitalization)
  Sender: FDA-Public Use
  Company Number: TR-NOVOPROD-415579

PATIENT
  Sex: Male
  Weight: 3.7 kg

DRUGS (4)
  1. DECAVIT                            /06014801/ [Concomitant]
     Indication: SUPPLEMENTATION THERAPY
     Dosage: 1X1
     Route: 064
     Dates: start: 201401, end: 20140521
  2. HUMULIN N [Concomitant]
     Active Substance: INSULIN HUMAN
     Indication: GESTATIONAL DIABETES
     Dosage: 6 U, QD
     Route: 064
     Dates: start: 20140328, end: 20140521
  3. NOVORAPID [Suspect]
     Active Substance: INSULIN ASPART
     Indication: GESTATIONAL DIABETES
     Dosage: 16 U, QD
     Route: 064
     Dates: start: 20140328, end: 20140521
  4. GYNOFERON [Concomitant]
     Indication: SUPPLEMENTATION THERAPY
     Dosage: 1X1
     Route: 064
     Dates: start: 201311, end: 20140521

REACTIONS (2)
  - Kidney malformation [Not Recovered/Not Resolved]
  - Foetal exposure during pregnancy [Recovered/Resolved]

NARRATIVE: CASE EVENT DATE: 20140328
